FAERS Safety Report 6505042-8 (Version None)
Quarter: 2009Q4

REPORT INFORMATION
  Report Type: 
  Country: None (occurrence: None)
  Receive Date: 20091218
  Receipt Date: 20091208
  Transmission Date: 20100525
  Serious: Yes (Other)
  Sender: FDA-Public Use
  Company Number: US-JNJFOC-20080901079

PATIENT

DRUGS (1)
  1. DORIBAX [Suspect]
     Indication: SEPSIS
     Route: 041
     Dates: start: 20080101, end: 20080101

REACTIONS (1)
  - CONVULSION [None]
